FAERS Safety Report 21844079 (Version 2)
Quarter: 2023Q1

REPORT INFORMATION
  Report Type: Spontaneous
  Country: GB (occurrence: GB)
  Receive Date: 20230110
  Receipt Date: 20230308
  Transmission Date: 20230418
  Serious: Yes (Hospitalization)
  Sender: FDA-Public Use
  Company Number: GB-VERTEX PHARMACEUTICALS-2023-000183

PATIENT
  Sex: Female

DRUGS (2)
  1. IVACAFTOR\TEZACAFTOR [Suspect]
     Active Substance: IVACAFTOR\TEZACAFTOR
     Indication: Cystic fibrosis
     Dosage: 1 TABLET (100 MG TEZACAFTOR AND 150 MG IVACAFTOR), QD (DAILY IN THE MORNING)
     Route: 048
  2. KALYDECO [Suspect]
     Active Substance: IVACAFTOR
     Indication: Cystic fibrosis
     Dosage: 150 MG
     Route: 048

REACTIONS (9)
  - Viral infection [Unknown]
  - Hospitalisation [Unknown]
  - Cortisol decreased [Recovering/Resolving]
  - Malaise [Recovering/Resolving]
  - Nervousness [Recovered/Resolved]
  - Gait disturbance [Unknown]
  - Hypoglycaemia [Recovered/Resolved]
  - Mycobacterial infection [Unknown]
  - Adrenal insufficiency [Unknown]

NARRATIVE: CASE EVENT DATE: 20230101
